FAERS Safety Report 21081506 (Version 1)
Quarter: 2022Q3

REPORT INFORMATION
  Report Type: Spontaneous
  Country: US (occurrence: None)
  Receive Date: 20220713
  Receipt Date: 20220713
  Transmission Date: 20221026
  Serious: No
  Sender: FDA-Public Use
  Company Number: None

PATIENT
  Age: 9 Week
  Sex: Female
  Weight: 80.55 kg

DRUGS (3)
  1. KEYTRUDA [Suspect]
     Active Substance: PEMBROLIZUMAB
     Indication: Neoplasm malignant
     Dates: start: 20220302, end: 20220617
  2. Allopurinol levothyroxiin 88 Rv. Losarten [Concomitant]
  3. Tylenol miralax [Concomitant]

REACTIONS (15)
  - Musculoskeletal stiffness [None]
  - Pain [None]
  - Inflammation [None]
  - Trigger finger [None]
  - Arthralgia [None]
  - Arthralgia [None]
  - Gait disturbance [None]
  - Neuromuscular pain [None]
  - Bone pain [None]
  - Arthralgia [None]
  - Tendon disorder [None]
  - Skin abrasion [None]
  - Fibromyalgia [None]
  - Hernia hiatus repair [None]
  - Therapy cessation [None]

NARRATIVE: CASE EVENT DATE: 20220707
